FAERS Safety Report 19705286 (Version 1)
Quarter: 2021Q3

REPORT INFORMATION
  Report Type: Spontaneous
  Country: GB (occurrence: GB)
  Receive Date: 20210816
  Receipt Date: 20210816
  Transmission Date: 20211014
  Serious: Yes (Life-Threatening, Hospitalization, Disabling, Other)
  Sender: FDA-Public Use
  Company Number: GB-MYLANLABS-2021M1049877

PATIENT
  Age: 45 Year
  Sex: Male
  Weight: 69.85 kg

DRUGS (1)
  1. CITALOPRAM [Suspect]
     Active Substance: CITALOPRAM HYDROBROMIDE
     Indication: ILL-DEFINED DISORDER
     Dosage: UNK

REACTIONS (7)
  - Blindness [Recovered/Resolved]
  - Heart rate abnormal [Unknown]
  - Medication error [Unknown]
  - Hallucination [Unknown]
  - Dyspnoea [Unknown]
  - Personality change [Unknown]
  - Brain neoplasm [Unknown]

NARRATIVE: CASE EVENT DATE: 20160801
